FAERS Safety Report 17638588 (Version 1)
Quarter: 2020Q2

REPORT INFORMATION
  Report Type: Other
  Country: GB (occurrence: GB)
  Receive Date: 20200407
  Receipt Date: 20200407
  Transmission Date: 20200713
  Serious: Yes (Other)
  Sender: FDA-Public Use
  Company Number: GB-GLENMARK PHARMACEUTICALS-2020GMK046884

PATIENT

DRUGS (1)
  1. MONTELUKAST SODIUM. [Suspect]
     Active Substance: MONTELUKAST SODIUM
     Indication: ASTHMA
     Dosage: 4 MILLIGRAM
     Route: 048
     Dates: start: 20190301, end: 20200301

REACTIONS (3)
  - Aggression [Recovering/Resolving]
  - Sleep terror [Recovering/Resolving]
  - Affect lability [Recovering/Resolving]

NARRATIVE: CASE EVENT DATE: 20190301
